FAERS Safety Report 5374122-5 (Version None)
Quarter: 2007Q2

REPORT INFORMATION
  Report Type: 
  Country: None (occurrence: None)
  Receive Date: 20070627
  Receipt Date: 20070606
  Transmission Date: 20071010
  Serious: Yes (Hospitalization)
  Sender: FDA-Public Use
  Company Number: ENTC2007-0147

PATIENT
  Age: 77 Year
  Sex: Male

DRUGS (10)
  1. STALEVO 100 [Suspect]
     Indication: PARKINSON'S DISEASE
     Dosage: 100 QDS ORAL
     Route: 048
     Dates: start: 20040101, end: 20060101
  2. ARICEPT [Concomitant]
  3. ASPIRIN [Concomitant]
  4. VENLAFAXINE MR [Concomitant]
  5. HYDROCORTISONE [Concomitant]
  6. DOMPERIDONE [Concomitant]
  7. PROSCAR [Concomitant]
  8. PREDNISONE TAB [Concomitant]
  9. CALCICHEW D3 FORTE [Concomitant]
  10. ALENDRONATE SODIUM [Concomitant]

REACTIONS (5)
  - AGITATION [None]
  - CIRCULATORY COLLAPSE [None]
  - GENERAL PHYSICAL HEALTH DETERIORATION [None]
  - HALLUCINATIONS, MIXED [None]
  - TREMOR [None]
